FAERS Safety Report 4392941-9 (Version None)
Quarter: 2004Q3

REPORT INFORMATION
  Report Type: 
  Country: None (occurrence: None)
  Receive Date: 20040702
  Receipt Date: 20040624
  Transmission Date: 20050211
  Serious: No
  Sender: FDA-Public Use
  Company Number: 04P-076-0263742-00

PATIENT
  Age: 44 Year
  Sex: Female
  Weight: 79 kg

DRUGS (2)
  1. SEVORANE LIQUID FOR INHALATION (ULTANE LIQUID FOR INHALATION) (SEVOFLU [Suspect]
     Indication: ANAESTHESIA
     Dosage: INHALATION
     Route: 055
  2. ATRACURIUM BESYLATE [Suspect]
     Indication: MUSCLE RELAXANT THERAPY
     Dosage: 50 MG, 1 IN 1 D,  INTRAVENOUS
     Route: 042

REACTIONS (4)
  - ANAESTHETIC COMPLICATION [None]
  - HYPOTENSION [None]
  - RASH [None]
  - TACHYCARDIA [None]
